FAERS Safety Report 8200067-9 (Version None)
Quarter: 2012Q1

REPORT INFORMATION
  Report Type: 
  Country: None (occurrence: None)
  Receive Date: 20120312
  Receipt Date: 20120302
  Transmission Date: 20120608
  Serious: Yes (Other)
  Sender: FDA-Public Use
  Company Number: US-BAYER-2012-021522

PATIENT
  Age: 38 Year
  Sex: Female

DRUGS (1)
  1. MIRENA [Suspect]
     Indication: MENORRHAGIA
     Dosage: 20 ?G/D, CONT
     Route: 015
     Dates: start: 20101201, end: 20120229

REACTIONS (5)
  - URINARY TRACT INFECTION [None]
  - HAEMORRHOIDS [None]
  - DYSPEPSIA [None]
  - BACTERIAL INFECTION [None]
  - AMENORRHOEA [None]
